FAERS Safety Report 7831633-8 (Version None)
Quarter: 2011Q4

REPORT INFORMATION
  Report Type: 
  Country: None (occurrence: None)
  Receive Date: 20111021
  Receipt Date: 20111013
  Transmission Date: 20120403
  Serious: Yes (Other)
  Sender: FDA-Public Use
  Company Number: BR-MEDIMMUNE-MEDI-0013721

PATIENT
  Sex: Male
  Weight: 6.4 kg

DRUGS (4)
  1. SYNAGIS [Suspect]
     Dates: start: 20090908, end: 20100824
  2. DOMPERIDONE [Concomitant]
  3. FUROSEMIDE [Concomitant]
  4. RANITIDINE [Concomitant]

REACTIONS (3)
  - PYREXIA [None]
  - DYSPNOEA [None]
  - ARTERIAL DISORDER [None]
